FAERS Safety Report 22585034 (Version 1)
Quarter: 2023Q2

REPORT INFORMATION
  Report Type: Spontaneous
  Country: CN (occurrence: CN)
  Receive Date: 20230609
  Receipt Date: 20230609
  Transmission Date: 20230721
  Serious: Yes (Other)
  Sender: FDA-Public Use
  Company Number: CN-OTSUKA-2023_015197

PATIENT
  Age: 19 Year
  Sex: Male

DRUGS (15)
  1. BUSULFAN [Suspect]
     Active Substance: BUSULFAN
     Indication: Aplastic anaemia
     Dosage: 0.8 MG/KG (FOUR INTRAVENOUS (I.V.) DOSES OF 0.8 MG/KG BUSULFAN (BU) ON DAYS -8 AND -7)
     Route: 042
  2. BUSULFAN [Suspect]
     Active Substance: BUSULFAN
     Indication: Allogenic stem cell transplantation
  3. BUSULFAN [Suspect]
     Active Substance: BUSULFAN
     Indication: Bone marrow conditioning regimen
  4. CYCLOPHOSPHAMIDE [Suspect]
     Active Substance: CYCLOPHOSPHAMIDE
     Indication: Aplastic anaemia
     Dosage: 42.75 MG/KG (ONE INTRAVENOUS DOSE OF 42.75 MG/KG CYCLOPHOSPHAMIDE FROM DAYS -5 TO -2)
     Route: 042
  5. CYCLOPHOSPHAMIDE [Suspect]
     Active Substance: CYCLOPHOSPHAMIDE
     Indication: Bone marrow conditioning regimen
     Dosage: 14.5 MG/KG
     Route: 042
  6. CYCLOPHOSPHAMIDE [Suspect]
     Active Substance: CYCLOPHOSPHAMIDE
     Indication: Allogenic stem cell transplantation
  7. CYCLOPHOSPHAMIDE [Suspect]
     Active Substance: CYCLOPHOSPHAMIDE
     Indication: Prophylaxis against graft versus host disease
  8. ANTI-THYMOCYTE GLOBULIN (RABBIT) NOS [Suspect]
     Active Substance: LAPINE T-LYMPHOCYTE IMMUNE GLOBULIN
     Indication: Aplastic anaemia
     Dosage: 2.5 MG/KG (FOUR-DAY INTRAVENOUS TREATMENT OF 2.5 MG/KG RABBIT ATG (FROM SANGSTAT)
     Route: 042
  9. ANTI-THYMOCYTE GLOBULIN (RABBIT) NOS [Suspect]
     Active Substance: LAPINE T-LYMPHOCYTE IMMUNE GLOBULIN
     Indication: Allogenic stem cell transplantation
  10. ANTI-THYMOCYTE GLOBULIN (RABBIT) NOS [Suspect]
     Active Substance: LAPINE T-LYMPHOCYTE IMMUNE GLOBULIN
     Indication: Bone marrow conditioning regimen
  11. ANTI-THYMOCYTE GLOBULIN (RABBIT) NOS [Suspect]
     Active Substance: LAPINE T-LYMPHOCYTE IMMUNE GLOBULIN
     Indication: Prophylaxis against graft versus host disease
  12. CYCLOSPORINE [Suspect]
     Active Substance: CYCLOSPORINE
     Indication: Prophylaxis against graft versus host disease
     Dosage: 1.5MG/KG, Q12H (FROM DAY -9)
     Route: 042
  13. MYCOPHENOLATE MOFETIL [Suspect]
     Active Substance: MYCOPHENOLATE MOFETIL
     Indication: Prophylaxis against graft versus host disease
     Dosage: 0.5 G EVERY 12 H
     Route: 048
  14. METHOTREXATE [Suspect]
     Active Substance: METHOTREXATE
     Indication: Prophylaxis against graft versus host disease
     Dosage: 15MG/M2 ON DAY +1 FOLLOWED BY DOSES OF 10MG/M2- 15 MG/M2
     Route: 042
  15. GANCICLOVIR [Suspect]
     Active Substance: GANCICLOVIR
     Indication: Prophylaxis
     Dosage: 5 MG/KG, BID
     Route: 042

REACTIONS (4)
  - Urinary bladder toxicity [Unknown]
  - Cytomegalovirus infection reactivation [Unknown]
  - Gastrointestinal toxicity [Unknown]
  - Product use in unapproved indication [Unknown]
